FAERS Safety Report 8280817-6 (Version None)
Quarter: 2012Q2

REPORT INFORMATION
  Report Type: 
  Country: None (occurrence: None)
  Receive Date: 20120412
  Receipt Date: 20120405
  Transmission Date: 20120825
  Serious: Yes (Other)
  Sender: FDA-Public Use
  Company Number: US-ABBOTT-12P-163-0922542-00

PATIENT
  Sex: Male
  Weight: 90.8 kg

DRUGS (1)
  1. HUMIRA [Suspect]
     Indication: CROHN'S DISEASE
     Route: 058
     Dates: start: 20100101, end: 20110901

REACTIONS (4)
  - INTESTINAL STENOSIS [None]
  - INTESTINAL OBSTRUCTION [None]
  - WOUND SECRETION [None]
  - INCISION SITE INFECTION [None]
